FAERS Safety Report 8612650-7 (Version None)
Quarter: 2012Q3

REPORT INFORMATION
  Report Type: 
  Country: None (occurrence: None)
  Receive Date: 20120822
  Receipt Date: 20110920
  Transmission Date: 20120928
  Serious: No
  Sender: FDA-Public Use
  Company Number: US-ASTRAZENECA-2011SE56614

PATIENT
  Age: 75 Year
  Sex: Female

DRUGS (1)
  1. SYMBICORT [Suspect]
     Dosage: 160/4.5 MCG TWO PUFFS TWO TIMES A DAY
     Route: 055

REACTIONS (2)
  - DYSPNOEA [None]
  - INCORRECT DOSE ADMINISTERED [None]
